FAERS Safety Report 23636040 (Version 1)
Quarter: 2024Q1

REPORT INFORMATION
  Report Type: Spontaneous
  Country: US (occurrence: US)
  Receive Date: 20240315
  Receipt Date: 20240315
  Transmission Date: 20240409
  Serious: Yes (Other)
  Sender: FDA-Public Use
  Company Number: US-PROCTER+GAMBLE-PH24002337

PATIENT
  Age: 70 Year
  Sex: Female

DRUGS (1)
  1. DIETARY SUPPLEMENT [Suspect]
     Active Substance: DIETARY SUPPLEMENT
     Indication: Neuralgia
     Dosage: 1 /DAY, AS RECOMMENDED ON PRODUCT INSTRUCTION
     Route: 048
     Dates: start: 202201, end: 202312

REACTIONS (5)
  - Renal failure [Not Recovered/Not Resolved]
  - Glomerulonephritis membranous [Not Recovered/Not Resolved]
  - Joint swelling [Not Recovered/Not Resolved]
  - Peripheral swelling [Not Recovered/Not Resolved]
  - Protein urine present [Unknown]

NARRATIVE: CASE EVENT DATE: 20231201
